FAERS Safety Report 5722577-6 (Version None)
Quarter: 2008Q2

REPORT INFORMATION
  Report Type: 
  Country: None (occurrence: None)
  Receive Date: 20080429
  Receipt Date: 20070724
  Transmission Date: 20081010
  Serious: Yes (Other)
  Sender: FDA-Public Use
  Company Number: US-ASTRAZENECA-2007UW18000

PATIENT
  Sex: Female

DRUGS (6)
  1. NEXIUM [Suspect]
     Indication: GASTROOESOPHAGEAL REFLUX DISEASE
     Route: 048
  2. NEXIUM [Suspect]
     Indication: CHEST PAIN
     Route: 048
  3. PROZAC [Concomitant]
  4. VYTORIN [Concomitant]
  5. INHALER [Concomitant]
     Indication: ASTHMA
  6. PRILOSEC [Concomitant]
     Route: 048

REACTIONS (1)
  - DRUG INEFFECTIVE [None]
